FAERS Safety Report 10383858 (Version 1)
Quarter: 2014Q3

REPORT INFORMATION
  Report Type: Spontaneous
  Country: HU (occurrence: HU)
  Receive Date: 20140814
  Receipt Date: 20140814
  Transmission Date: 20150326
  Serious: Yes (Hospitalization, Other)
  Sender: FDA-Public Use
  Company Number: HU-ROCHE-1446226

PATIENT
  Age: 87 Year
  Sex: Male

DRUGS (6)
  1. AVASTIN [Suspect]
     Active Substance: BEVACIZUMAB
     Indication: AGE-RELATED MACULAR DEGENERATION
     Dosage: 1.25 MG/0.05 ML
     Route: 031
     Dates: start: 20130425, end: 201306
  2. AVASTIN [Suspect]
     Active Substance: BEVACIZUMAB
     Dosage: 1.25 MG/0.05 ML
     Route: 031
     Dates: start: 20140722, end: 20140722
  3. AVASTIN [Suspect]
     Active Substance: BEVACIZUMAB
     Dosage: 1.25 MG/0.05 ML
     Route: 031
     Dates: start: 20130902, end: 20130902
  4. AVASTIN [Suspect]
     Active Substance: BEVACIZUMAB
     Dosage: 1.25 MG/0.05 ML
     Route: 031
     Dates: start: 20131104, end: 20131104
  5. AVASTIN [Suspect]
     Active Substance: BEVACIZUMAB
     Dosage: 1.25 MG/0.05 ML
     Route: 031
     Dates: start: 20130702, end: 20130702
  6. AVASTIN [Suspect]
     Active Substance: BEVACIZUMAB
     Dosage: 1.25 MG/0.05 ML
     Route: 031
     Dates: start: 20140120, end: 20140120

REACTIONS (5)
  - Inadequate aseptic technique in use of product [Unknown]
  - Suspected transmission of an infectious agent via product [Unknown]
  - Endophthalmitis [Recovered/Resolved]
  - Visual acuity reduced transiently [Recovered/Resolved]
  - Off label use [Unknown]

NARRATIVE: CASE EVENT DATE: 20140722
